FAERS Safety Report 5020528-3 (Version None)
Quarter: 2006Q2

REPORT INFORMATION
  Report Type: 
  Country: None (occurrence: None)
  Receive Date: 20060606
  Receipt Date: 20060606
  Transmission Date: 20061013
  Serious: No
  Sender: FDA-Public Use
  Company Number: None

PATIENT
  Age: 77 Year
  Sex: Male
  Weight: 67.1324 kg

DRUGS (2)
  1. COUMADIN [Suspect]
     Dates: start: 20041213, end: 20041221
  2. KETEK [Suspect]
     Dates: start: 20041213, end: 20041221

REACTIONS (2)
  - INTERNATIONAL NORMALISED RATIO DECREASED [None]
  - INTERNATIONAL NORMALISED RATIO INCREASED [None]
